FAERS Safety Report 9676512 (Version 1)
Quarter: 2013Q4

REPORT INFORMATION
  Report Type: Spontaneous
  Country: GB (occurrence: GB)
  Receive Date: 20131107
  Receipt Date: 20131107
  Transmission Date: 20140711
  Serious: Yes (Other)
  Sender: FDA-Public Use
  Company Number: GB-ROCHE-1296543

PATIENT
  Age: 32 Year
  Sex: Male
  Weight: 103.9 kg

DRUGS (16)
  1. RIBAVIRIN [Suspect]
     Indication: HEPATITIS C
     Route: 048
     Dates: start: 20130827
  2. VIRAFERON [Suspect]
     Indication: HEPATITIS C
     Route: 058
     Dates: start: 20130827
  3. ZAPONEX [Suspect]
     Indication: SCHIZOAFFECTIVE DISORDER
     Route: 048
     Dates: start: 20121008, end: 20130903
  4. ZAPONEX [Suspect]
     Route: 048
     Dates: start: 20080819, end: 20121001
  5. ZAPONEX [Suspect]
     Route: 048
     Dates: end: 20130905
  6. AMISULPRIDE [Concomitant]
     Indication: PSYCHOTIC DISORDER
     Route: 048
     Dates: start: 20130925
  7. BENZHEXOL [Concomitant]
     Indication: EXTRAPYRAMIDAL DISORDER
     Route: 048
     Dates: start: 20130904
  8. COLECALCIFEROL [Concomitant]
     Route: 048
     Dates: start: 20130705
  9. FENOFIBRATE [Concomitant]
     Route: 048
     Dates: start: 20121102
  10. GLICLAZIDE [Concomitant]
     Indication: DIABETES MELLITUS
     Route: 048
     Dates: start: 20121101
  11. LANSOPRAZOLE [Concomitant]
     Route: 048
     Dates: start: 20121101
  12. LITHIUM CARBONATE [Concomitant]
     Indication: MOOD SWINGS
     Route: 048
     Dates: start: 2012
  13. METFORMIN [Concomitant]
     Route: 065
     Dates: start: 20121101
  14. OLANZAPINE [Concomitant]
     Route: 048
  15. TELAPREVIR [Concomitant]
     Indication: HEPATITIS C
     Route: 048
     Dates: start: 20130827
  16. VENLAFAXINE [Concomitant]
     Route: 048
     Dates: start: 20121101

REACTIONS (7)
  - Hepatitis C [Unknown]
  - Leukopenia [Recovering/Resolving]
  - Neutropenia [Recovering/Resolving]
  - Neutrophil count decreased [Recovering/Resolving]
  - Platelet count decreased [Recovered/Resolved]
  - White blood cell count decreased [Recovered/Resolved]
  - Off label use [Unknown]
